FAERS Safety Report 4416537-5 (Version None)
Quarter: 2004Q3

REPORT INFORMATION
  Report Type: 
  Country: None (occurrence: None)
  Receive Date: 20040802
  Receipt Date: 20040723
  Transmission Date: 20050211
  Serious: Yes (Hospitalization)
  Sender: FDA-Public Use
  Company Number: MK200407-0201-1

PATIENT
  Age: 56 Year
  Sex: Male

DRUGS (1)
  1. ANAFRANIL CAP [Suspect]
     Dosage: 25-50,G, BID
     Dates: start: 19950615, end: 20040715

REACTIONS (2)
  - CARDIAC FAILURE [None]
  - CONGESTIVE CARDIOMYOPATHY [None]
